FAERS Safety Report 7410453-2 (Version None)
Quarter: 2011Q2

REPORT INFORMATION
  Report Type: 
  Country: None (occurrence: None)
  Receive Date: 20110413
  Receipt Date: 20110406
  Transmission Date: 20111010
  Serious: Yes (Hospitalization)
  Sender: FDA-Public Use
  Company Number: US-BIOGENIDEC-2011BI007108

PATIENT
  Age: 39 Year
  Sex: Female

DRUGS (11)
  1. TRILEPTAL [Concomitant]
     Indication: NEURALGIA
     Route: 048
  2. NEXIUM [Concomitant]
  3. TRAZODONE [Concomitant]
     Indication: SLEEP DISORDER
  4. VALIUM [Concomitant]
  5. NUVIGIL [Concomitant]
     Indication: FATIGUE
  6. BACLOFEN [Concomitant]
  7. CYMBALTA [Concomitant]
  8. TYSABRI [Suspect]
     Indication: MULTIPLE SCLEROSIS
     Route: 042
     Dates: start: 20100322, end: 20110103
  9. PERCOCET [Concomitant]
     Indication: PAIN
  10. DURAGESIC-100 [Concomitant]
     Indication: PAIN
  11. NEURONTIN [Concomitant]

REACTIONS (1)
  - LUNG DISORDER [None]
